FAERS Safety Report 5143253-7 (Version None)
Quarter: 2006Q4

REPORT INFORMATION
  Report Type: 
  Country: None (occurrence: None)
  Receive Date: 20061031
  Receipt Date: 20061031
  Transmission Date: 20070319
  Serious: Yes (Hospitalization)
  Sender: FDA-Public Use
  Company Number: None

PATIENT
  Age: 51 Year
  Sex: Male
  Weight: 122.4712 kg

DRUGS (14)
  1. WARFARIN SODIUM [Suspect]
     Dosage: 15 MG DAILY
     Dates: start: 20060801
  2. ATENOLOL [Concomitant]
  3. FISH OIL [Concomitant]
  4. SIMVASTATIN [Concomitant]
  5. HYDROCHLOROTHIAZIDE [Concomitant]
  6. LISINOPRIL [Concomitant]
  7. OMEPRAZOLE [Concomitant]
  8. CITALOPRAM HYDROBROMIDE [Concomitant]
  9. DOXEPIN HCL [Concomitant]
  10. GABAPENTIN [Concomitant]
  11. RISPERIDONE [Concomitant]
  12. TOLNAFTATE CREAM [Concomitant]
  13. VARDENAFIL [Concomitant]
  14. CLONAZEPAM [Concomitant]

REACTIONS (4)
  - HOSTILITY [None]
  - INTERNATIONAL NORMALISED RATIO INCREASED [None]
  - POISONING [None]
  - REFUSAL OF TREATMENT BY PATIENT [None]
